FAERS Safety Report 12546473 (Version 2)
Quarter: 2016Q3

REPORT INFORMATION
  Report Type: Spontaneous
  Country: DE (occurrence: DE)
  Receive Date: 20160711
  Receipt Date: 20160714
  Transmission Date: 20161109
  Serious: Yes (Death, Life-Threatening, Hospitalization)
  Sender: FDA-Public Use
  Company Number: GXKR2016DE003201

PATIENT

DRUGS (2)
  1. CHININSULFAT HAENSELER [Interacting]
     Active Substance: QUININE SULFATE
     Indication: PRODUCT USED FOR UNKNOWN INDICATION
     Dosage: UNK
     Dates: start: 20160622, end: 20160622
  2. LOPERAMIDE [Suspect]
     Active Substance: LOPERAMIDE
     Indication: GASTROENTERITIS
     Dosage: UNK UKN, UNK
     Route: 048
     Dates: start: 20160622, end: 20160623

REACTIONS (7)
  - Disturbance in attention [Fatal]
  - Drug effect increased [Fatal]
  - Resuscitation [Fatal]
  - Brain injury [Fatal]
  - Sedation [Fatal]
  - Aspiration [Fatal]
  - Food interaction [Fatal]

NARRATIVE: CASE EVENT DATE: 20160623
